FAERS Safety Report 9198543 (Version 2)
Quarter: 2013Q2

REPORT INFORMATION
  Report Type: Spontaneous
  Country: TR (occurrence: TR)
  Receive Date: 20130329
  Receipt Date: 20130410
  Transmission Date: 20140414
  Serious: Yes (Hospitalization)
  Sender: FDA-Public Use
  Company Number: PHHY2013TR030708

PATIENT
  Age: 13 Year
  Sex: Male
  Weight: 27.9 kg

DRUGS (1)
  1. EXJADE [Suspect]
     Indication: THALASSAEMIA BETA
     Dosage: 875 MG, DAILY
     Route: 048
     Dates: start: 2007

REACTIONS (3)
  - Syncope [Unknown]
  - Nausea [Unknown]
  - Vomiting [Unknown]
